FAERS Safety Report 9499057 (Version 12)
Quarter: 2015Q4

REPORT INFORMATION
  Report Type: Report from Study
  Country: ES (occurrence: ES)
  Receive Date: 20130904
  Receipt Date: 20151016
  Transmission Date: 20160305
  Serious: Yes (Death, Hospitalization)
  Sender: FDA-Public Use
  Company Number: ES-ROCHE-1233297

PATIENT
  Age: 49 Year
  Sex: Female
  Weight: 52.4 kg

DRUGS (12)
  1. ENANTYUM [Concomitant]
     Active Substance: DEXKETOPROFEN TROMETAMOL
     Route: 065
     Dates: start: 20130603, end: 20130603
  2. OMEPRAZOLE. [Concomitant]
     Active Substance: OMEPRAZOLE
     Route: 065
     Dates: start: 20130613
  3. TRASTUZUMAB EMTANSINE [Suspect]
     Active Substance: ADO-TRASTUZUMAB EMTANSINE
     Dosage: DATE OF THE LAST DOSE PRIOR TO THE EVENT MENINGOENCEPHALITIS: 12/JUN/2013
     Route: 042
     Dates: start: 20130612, end: 20130620
  4. NOLOTIL [Concomitant]
     Active Substance: METAMIZOLE
     Route: 065
     Dates: start: 20130605
  5. ENANTYUM [Concomitant]
     Active Substance: DEXKETOPROFEN TROMETAMOL
     Route: 065
     Dates: start: 20130605, end: 20130617
  6. TRASTUZUMAB EMTANSINE [Suspect]
     Active Substance: ADO-TRASTUZUMAB EMTANSINE
     Indication: HER-2 POSITIVE BREAST CANCER
     Dosage: DATE OF LAST DOSE PRIOR TO EPIGASTRALGIA: 14/MAY/2013;
     Route: 042
     Dates: start: 20130327, end: 20130605
  7. LORAZEPAM. [Concomitant]
     Active Substance: LORAZEPAM
     Route: 065
     Dates: start: 20130320
  8. LORAZEPAM. [Concomitant]
     Active Substance: LORAZEPAM
     Route: 065
     Dates: start: 20130618
  9. LORAZEPAM. [Concomitant]
     Active Substance: LORAZEPAM
     Route: 065
     Dates: start: 20130603, end: 20130603
  10. CIDINE (SPAIN) [Concomitant]
     Route: 065
     Dates: start: 20130605
  11. OMEPRAZOLE. [Concomitant]
     Active Substance: OMEPRAZOLE
     Route: 065
     Dates: start: 20130313, end: 20130605
  12. ENANTYUM [Concomitant]
     Active Substance: DEXKETOPROFEN TROMETAMOL
     Route: 065
     Dates: start: 20130618

REACTIONS (2)
  - Abdominal pain upper [Recovered/Resolved]
  - Encephalitis [Not Recovered/Not Resolved]

NARRATIVE: CASE EVENT DATE: 20130601
